FAERS Safety Report 23250230 (Version 2)
Quarter: 2024Q3

REPORT INFORMATION
  Report Type: Spontaneous
  Country: US (occurrence: US)
  Receive Date: 20231201
  Receipt Date: 20240709
  Transmission Date: 20241017
  Serious: Yes (Death, Other)
  Sender: CHATTEM
  Company Number: US-OPELLA-2023OHG015272

PATIENT
  Age: 81 Year
  Sex: Male

DRUGS (1)
  1. TALC [Suspect]
     Active Substance: TALC
     Indication: Product used for unknown indication

REACTIONS (2)
  - Epithelioid mesothelioma [Fatal]
  - Exposure to chemical pollution [Unknown]

NARRATIVE: CASE EVENT DATE: 20221129
